FAERS Safety Report 9394565 (Version 3)
Quarter: 2013Q3

REPORT INFORMATION
  Report Type: Spontaneous
  Country: TH (occurrence: TH)
  Receive Date: 20130711
  Receipt Date: 20130816
  Transmission Date: 20140515
  Serious: Yes (Death, Hospitalization)
  Sender: FDA-Public Use
  Company Number: TH-BAYER-2013-080768

PATIENT
  Age: 39 Year
  Sex: Male

DRUGS (2)
  1. CIPROBAY [Suspect]
     Indication: DIARRHOEA
     Dosage: 400 MG, UNK
     Route: 042
  2. CIPROBAY [Suspect]
     Indication: PYREXIA

REACTIONS (1)
  - Ventricular tachycardia [Fatal]
